FAERS Safety Report 5351118-0 (Version None)
Quarter: 2007Q2

REPORT INFORMATION
  Report Type: 
  Country: None (occurrence: None)
  Receive Date: 20070608
  Receipt Date: 20070531
  Transmission Date: 20071010
  Serious: Yes (Other)
  Sender: FDA-Public Use
  Company Number: US-PFIZER INC-2007035359

PATIENT
  Sex: Female
  Weight: 72.727 kg

DRUGS (4)
  1. LIPITOR [Suspect]
     Indication: BLOOD CHOLESTEROL INCREASED
     Dates: start: 20050101, end: 20070201
  2. PRILOSEC [Interacting]
     Indication: GASTRIC DISORDER
  3. SYNTHROID [Concomitant]
  4. ACTIGALL [Concomitant]

REACTIONS (5)
  - DIABETES MELLITUS [None]
  - DRUG INTERACTION [None]
  - GASTRIC DISORDER [None]
  - MUSCULAR WEAKNESS [None]
  - MUSCULOSKELETAL DISCOMFORT [None]
